FAERS Safety Report 6053433-4 (Version None)
Quarter: 2009Q1

REPORT INFORMATION
  Report Type: 
  Country: None (occurrence: None)
  Receive Date: 20090127
  Receipt Date: 20080418
  Transmission Date: 20090719
  Serious: Yes (Other)
  Sender: FDA-Public Use
  Company Number: US-TEVA-169407USA

PATIENT
  Sex: Female
  Weight: 90.8 kg

DRUGS (10)
  1. COPAXONE [Suspect]
     Indication: MULTIPLE SCLEROSIS
     Route: 058
     Dates: start: 20071201, end: 20080321
  2. SERETIDE [Concomitant]
  3. ACETYLSALICYLIC ACID [Concomitant]
  4. VENLAFAXINE HYDROCHLORIDE [Concomitant]
  5. HYDROCHLOROTHIAZIDE [Concomitant]
  6. SUMATRIPTAN [Concomitant]
  7. OMEPRAZOLE [Concomitant]
  8. PROPACET 100 [Concomitant]
  9. METOPROLOL SUCCINATE [Concomitant]
  10. NAPROXEN SODIUM [Concomitant]

REACTIONS (5)
  - DYSPNOEA [None]
  - HYPERSENSITIVITY [None]
  - NAUSEA [None]
  - PRURITUS [None]
  - TONGUE OEDEMA [None]
